FAERS Safety Report 14195358 (Version 1)
Quarter: 2017Q4

REPORT INFORMATION
  Report Type: Spontaneous
  Country: US (occurrence: None)
  Receive Date: 20171116
  Receipt Date: 20171116
  Transmission Date: 20180321
  Serious: Yes (Other)
  Sender: FDA-Public Use
  Company Number: None

PATIENT
  Age: 63 Year
  Sex: Female

DRUGS (1)
  1. SUTENT [Suspect]
     Active Substance: SUNITINIB MALATE
     Indication: NEUROENDOCRINE TUMOUR
     Route: 048
     Dates: start: 20171007, end: 20171101

REACTIONS (2)
  - Swelling face [None]
  - Hypertension [None]

NARRATIVE: CASE EVENT DATE: 20171031
